FAERS Safety Report 9012688 (Version 4)
Quarter: 2014Q1

REPORT INFORMATION
  Report Type: Spontaneous
  Country: US (occurrence: US)
  Receive Date: 20130114
  Receipt Date: 20140123
  Transmission Date: 20141002
  Serious: Yes (Hospitalization)
  Sender: FDA-Public Use
  Company Number: US-009507513-1301USA005269

PATIENT
  Sex: Female
  Weight: 70.3 kg

DRUGS (1)
  1. NUVARING [Suspect]
     Indication: CONTRACEPTION
     Dosage: UNK
     Route: 067
     Dates: start: 200907, end: 20110307

REACTIONS (7)
  - Deep vein thrombosis [Recovered/Resolved]
  - Coagulopathy [Unknown]
  - Ear pain [Unknown]
  - Clostridium difficile colitis [Unknown]
  - Pain in extremity [Unknown]
  - Tympanoplasty [Unknown]
  - Vertigo [Unknown]
